FAERS Safety Report 7457899-4 (Version None)
Quarter: 2011Q2

REPORT INFORMATION
  Report Type: 
  Country: None (occurrence: None)
  Receive Date: 20110502
  Receipt Date: 20110502
  Transmission Date: 20111010
  Serious: Yes (Other)
  Sender: FDA-Public Use
  Company Number: None

PATIENT
  Age: 59 Year
  Sex: Male
  Weight: 95.5 kg

DRUGS (1)
  1. NIASPAN [Suspect]
     Dosage: 500 MG ONE PER DAY ORAL
     Route: 048
     Dates: start: 20110218, end: 20110222

REACTIONS (6)
  - BODY TEMPERATURE INCREASED [None]
  - VOMITING [None]
  - FLUSHING [None]
  - CHILLS [None]
  - NAUSEA [None]
  - TREMOR [None]
